FAERS Safety Report 8277703-4 (Version None)
Quarter: 2012Q2

REPORT INFORMATION
  Report Type: 
  Country: None (occurrence: None)
  Receive Date: 20120412
  Receipt Date: 20120404
  Transmission Date: 20120825
  Serious: Yes (Other)
  Sender: FDA-Public Use
  Company Number: JP-VERTEX PHARMACEUTICALS INC.-AE-2012-004979

PATIENT
  Age: 64 Year
  Sex: Female

DRUGS (3)
  1. REBETOL [Concomitant]
     Route: 048
     Dates: start: 20120228, end: 20120403
  2. TELAVIC (TELAPREVIR) [Suspect]
     Route: 048
     Dates: start: 20120228, end: 20120403
  3. PEG-INTRON [Concomitant]
     Route: 058
     Dates: start: 20120228, end: 20120403

REACTIONS (6)
  - INJECTION SITE ERYTHEMA [None]
  - DRUG ERUPTION [None]
  - DRY SKIN [None]
  - PYREXIA [None]
  - ERYTHEMA [None]
  - OCULAR HYPERAEMIA [None]
